FAERS Safety Report 16863673 (Version 21)
Quarter: 2022Q1

REPORT INFORMATION
  Report Type: Report from Study
  Country: US (occurrence: US)
  Receive Date: 20190927
  Receipt Date: 20220131
  Transmission Date: 20220424
  Serious: Yes (Life-Threatening, Hospitalization, Other)
  Sender: FDA-Public Use
  Company Number: US-TESAROUBC-2019-TSO02464-US

PATIENT
  Age: 63 Year
  Sex: Female
  Weight: 86 kg

DRUGS (28)
  1. NIRAPARIB [Suspect]
     Active Substance: NIRAPARIB
     Indication: Ovarian cancer
     Dosage: 300 MG, QPM WITH FOOD
     Route: 048
     Dates: start: 20190701
  2. NIRAPARIB [Suspect]
     Active Substance: NIRAPARIB
     Dosage: 300 MG, QD
     Dates: start: 201908
  3. NIRAPARIB [Suspect]
     Active Substance: NIRAPARIB
     Dosage: 200 MG, DAILY
     Route: 048
  4. NIRAPARIB [Suspect]
     Active Substance: NIRAPARIB
     Dosage: 200 MG, QD
     Route: 048
  5. NIRAPARIB [Suspect]
     Active Substance: NIRAPARIB
     Dosage: 200 MG, QD
     Route: 048
  6. NIRAPARIB [Suspect]
     Active Substance: NIRAPARIB
     Dosage: 200 MG, QD
     Route: 048
  7. NIRAPARIB [Suspect]
     Active Substance: NIRAPARIB
     Dosage: 200 MG, QD
     Route: 048
     Dates: start: 20190805
  8. NIRAPARIB [Suspect]
     Active Substance: NIRAPARIB
     Dosage: 200 MG, QD
  9. NIRAPARIB [Suspect]
     Active Substance: NIRAPARIB
     Dosage: 200 MG, QD
  10. NIRAPARIB [Suspect]
     Active Substance: NIRAPARIB
     Dosage: 200 MG, QD
     Route: 048
     Dates: start: 20191002
  11. NIRAPARIB [Suspect]
     Active Substance: NIRAPARIB
     Dosage: 300 MG, QPM WITH FOOD
     Route: 048
  12. NIRAPARIB [Suspect]
     Active Substance: NIRAPARIB
     Dosage: 200 MG, QD
     Route: 048
  13. NIRAPARIB [Suspect]
     Active Substance: NIRAPARIB
     Dosage: 200 MG, QD
     Route: 048
  14. NIRAPARIB [Suspect]
     Active Substance: NIRAPARIB
     Dosage: 200 MG, QD
     Route: 048
  15. NIRAPARIB [Suspect]
     Active Substance: NIRAPARIB
     Dosage: 200 MG, QD
     Dates: end: 20210217
  16. NIRAPARIB [Suspect]
     Active Substance: NIRAPARIB
     Dosage: 200 MG, QD
  17. NIRAPARIB [Suspect]
     Active Substance: NIRAPARIB
     Dosage: 1 DF, QD (1 CAPSULE DAILY)
     Dates: start: 202012
  18. NIRAPARIB [Suspect]
     Active Substance: NIRAPARIB
     Dosage: 2 DF, QD (2 CAPSULE DAILY)
     Dates: start: 20210618
  19. NIRAPARIB [Suspect]
     Active Substance: NIRAPARIB
     Dosage: 200 MG, QD
     Dates: start: 20210630
  20. NIRAPARIB [Suspect]
     Active Substance: NIRAPARIB
     Dosage: 200 MG, QD
  21. NIRAPARIB [Suspect]
     Active Substance: NIRAPARIB
     Dosage: 200 MG, QD
  22. NIRAPARIB [Suspect]
     Active Substance: NIRAPARIB
     Dosage: 200 MG, QD
  23. HYDROCHLOROTHIAZIDE [Concomitant]
     Active Substance: HYDROCHLOROTHIAZIDE
     Indication: Product used for unknown indication
     Dosage: UNK
  24. VALSARTAN [Concomitant]
     Active Substance: VALSARTAN
     Indication: Product used for unknown indication
     Dosage: UNK
  25. LEVOTHYROXINE [Concomitant]
     Active Substance: LEVOTHYROXINE
     Indication: Product used for unknown indication
     Dosage: UNK
  26. HYDROCHLOROTHIAZIDE\VALSARTAN [Concomitant]
     Active Substance: HYDROCHLOROTHIAZIDE\VALSARTAN
     Indication: Product used for unknown indication
     Dosage: UNK
  27. VITAMIN D3 [Concomitant]
     Active Substance: CHOLECALCIFEROL
     Indication: Product used for unknown indication
     Dosage: UNK
  28. BIOTIN [Concomitant]
     Active Substance: BIOTIN
     Indication: Product used for unknown indication
     Dosage: UNK

REACTIONS (33)
  - Platelet count decreased [Not Recovered/Not Resolved]
  - Hospitalisation [Unknown]
  - Nephrolithiasis [Not Recovered/Not Resolved]
  - Metastases to pancreas [Recovering/Resolving]
  - Pyrexia [Unknown]
  - Malaise [Unknown]
  - Carbohydrate antigen 125 increased [Not Recovered/Not Resolved]
  - Sinusitis [Unknown]
  - White blood cell count decreased [Unknown]
  - Vomiting [Unknown]
  - Nausea [Recovered/Resolved]
  - Blood pressure increased [Not Recovered/Not Resolved]
  - Dyspnoea [Recovering/Resolving]
  - Fatigue [Not Recovered/Not Resolved]
  - Cough [Unknown]
  - Nasopharyngitis [Not Recovered/Not Resolved]
  - Inguinal hernia [Unknown]
  - Flushing [Not Recovered/Not Resolved]
  - Hiatus hernia [Unknown]
  - Inflammation [Unknown]
  - Early satiety [Recovering/Resolving]
  - Headache [Not Recovered/Not Resolved]
  - Emergency care [Unknown]
  - Dizziness [Unknown]
  - Palpitations [Unknown]
  - Vertigo [Not Recovered/Not Resolved]
  - Adverse drug reaction [Unknown]
  - Pancreatic disorder [Recovering/Resolving]
  - COVID-19 [Not Recovered/Not Resolved]
  - Weight decreased [Not Recovered/Not Resolved]
  - Underdose [Unknown]
  - Intentional product misuse [Unknown]
  - Product dose omission issue [Unknown]

NARRATIVE: CASE EVENT DATE: 20190702
